FAERS Safety Report 6762866-X (Version None)
Quarter: 2010Q2

REPORT INFORMATION
  Report Type: 
  Country: None (occurrence: None)
  Receive Date: 20100608
  Receipt Date: 20100608
  Transmission Date: 20101027
  Serious: No
  Sender: FDA-Public Use
  Company Number: None

PATIENT
  Age: 58 Year
  Sex: Male
  Weight: 95 kg

DRUGS (6)
  1. AMD 3100 [Suspect]
     Indication: ACUTE MYELOID LEUKAEMIA
     Dosage: 30880 MCG, QAM, IV
     Route: 042
     Dates: start: 20100604
  2. ACETOMINOPHEN [Concomitant]
  3. ZOLPIDEM [Concomitant]
  4. ALLOPURINOL [Concomitant]
  5. VALACYCLOVIR [Concomitant]
  6. FUROSEMIDE [Concomitant]

REACTIONS (2)
  - HYPOTENSION [None]
  - SINUS BRADYCARDIA [None]
